FAERS Safety Report 8077047-X (Version None)
Quarter: 2012Q1

REPORT INFORMATION
  Report Type: 
  Country: None (occurrence: None)
  Receive Date: 20120127
  Receipt Date: 20120117
  Transmission Date: 20120608
  Serious: Yes (Other)
  Sender: FDA-Public Use
  Company Number: US-PERRIGO-12US000518

PATIENT
  Sex: Male
  Weight: 87.982 kg

DRUGS (3)
  1. NICOTINE POLACRILEX [Suspect]
     Indication: PRODUCT USED FOR UNKNOWN INDICATION
     Dosage: 2 MG, PRN
     Route: 002
     Dates: start: 20090301
  2. ANTIHYPERTENSIVES [Concomitant]
     Indication: HYPERTENSION
     Dosage: UNK
     Route: 048
     Dates: start: 20070101
  3. NICOTINE POLACRILEX [Suspect]
     Dosage: UP TO 9 PIECES IN 1/2 HOUR, 200 PIECES WEEKLY
     Route: 002
     Dates: start: 20111201

REACTIONS (9)
  - MOOD SWINGS [None]
  - AMNESIA [None]
  - THINKING ABNORMAL [None]
  - INCORRECT DRUG ADMINISTRATION DURATION [None]
  - OVERDOSE [None]
  - DEPRESSED MOOD [None]
  - EUPHORIC MOOD [None]
  - ABNORMAL BEHAVIOUR [None]
  - THROAT IRRITATION [None]
